FAERS Safety Report 8876620 (Version 2)
Quarter: 2015Q2

REPORT INFORMATION
  Report Type: Report from Study
  Country: US (occurrence: US)
  Receive Date: 20121023
  Receipt Date: 20150403
  Transmission Date: 20150821
  Serious: Yes (Other)
  Sender: FDA-Public Use
  Company Number: US-ROCHE-1130077

PATIENT
  Age: 42 Year
  Sex: Female

DRUGS (13)
  1. HERCEPTIN [Suspect]
     Active Substance: TRASTUZUMAB
     Route: 042
  2. XELODA [Suspect]
     Active Substance: CAPECITABINE
     Route: 048
  3. 5-FLUOROURACIL [Concomitant]
     Active Substance: FLUOROURACIL
  4. NAVELBINE [Concomitant]
     Active Substance: VINORELBINE TARTRATE
  5. XELODA [Suspect]
     Active Substance: CAPECITABINE
     Dosage: DAILY
     Route: 048
     Dates: start: 19980707
  6. LEUCOVORIN [Concomitant]
     Active Substance: LEUCOVORIN
  7. CISPLATINUM [Concomitant]
     Active Substance: CISPLATIN
  8. HERCEPTIN [Suspect]
     Active Substance: TRASTUZUMAB
     Indication: BREAST CANCER METASTATIC
     Route: 042
     Dates: start: 1997
  9. XELODA [Suspect]
     Active Substance: CAPECITABINE
     Indication: PRODUCT USED FOR UNKNOWN INDICATION
     Route: 048
     Dates: start: 19980602
  10. XELODA [Suspect]
     Active Substance: CAPECITABINE
     Route: 048
  11. LYSINE [Concomitant]
     Active Substance: LYSINE
     Route: 048
  12. VITAMIN B6 [Concomitant]
     Active Substance: PYRIDOXINE HYDROCHLORIDE
     Route: 048
  13. TAXOL [Concomitant]
     Active Substance: PACLITAXEL

REACTIONS (16)
  - Abdominal distension [Unknown]
  - Tenderness [Unknown]
  - Toxicity to various agents [Unknown]
  - Neuropathy peripheral [Unknown]
  - Palmar-plantar erythrodysaesthesia syndrome [Unknown]
  - Ulcer [Unknown]
  - Erythema [Unknown]
  - Skin lesion [Unknown]
  - Fatigue [Unknown]
  - Malaise [Unknown]
  - Weight increased [Unknown]
  - Oral pain [Unknown]
  - Metastases to skin [Unknown]
  - Stomatitis [Unknown]
  - Musculoskeletal chest pain [Unknown]
  - Diarrhoea [Unknown]

NARRATIVE: CASE EVENT DATE: 19990303
